FAERS Safety Report 21386594 (Version 3)
Quarter: 2022Q4

REPORT INFORMATION
  Report Type: Spontaneous
  Country: BR (occurrence: BR)
  Receive Date: 20220928
  Receipt Date: 20221007
  Transmission Date: 20230113
  Serious: Yes (Hospitalization, Other)
  Sender: FDA-Public Use
  Company Number: BR-BRISTOL-MYERS SQUIBB COMPANY-2022-110334

PATIENT
  Age: 67 Year
  Sex: Male
  Weight: 84.00 kg

DRUGS (13)
  1. ABRAXANE [Suspect]
     Active Substance: PACLITAXEL
     Indication: Adenocarcinoma pancreas
     Dosage: 125MG/M?, DAY 1, 8 AND 15 EVERY 28 DAYS
     Route: 042
  2. ABRAXANE [Suspect]
     Active Substance: PACLITAXEL
     Dosage: INJECTION, POWDER, LYOPHILIZED, FOR SUSPENSION
     Route: 042
     Dates: start: 202209
  3. ABRAXANE [Suspect]
     Active Substance: PACLITAXEL
     Route: 042
     Dates: start: 2019
  4. DOXAZOSIN [Concomitant]
     Active Substance: DOXAZOSIN MESYLATE
     Indication: Benign prostatic hyperplasia
     Dosage: 2MG/DAY (1 TABLET, ORALLY AT NIGHT, TREATMENT STARTED MORE THAN 2 YEARS AGO,
     Route: 048
  5. CLONAZEPAM [Concomitant]
     Active Substance: CLONAZEPAM
     Indication: Insomnia
     Dosage: 2.5MG/ML (0.3ML/DAY, 8 DROPS AT NIGHT IF NECESSARY, ORALLY, TREATMENT STARTED MORE THAN 2 YEARS AGO)
     Route: 048
  6. QUETIAPINE [Concomitant]
     Active Substance: QUETIAPINE
     Indication: Depression
     Dosage: 1 TABLET, ORALLY AT NIGHT, TREATMENT STARTED MORE THAN 2 YEARS AGO
     Route: 048
  7. PANTOPRAZOLE [Concomitant]
     Active Substance: PANTOPRAZOLE
     Indication: Gastritis
     Dosage: 1 TABLET ORALLY DAILY, ON AN EMPTY STOMACH, STARTED MORE THAN 2 YEARS AGO.
     Route: 048
  8. XARELTO [Concomitant]
     Active Substance: RIVAROXABAN
     Indication: Product used for unknown indication
     Dosage: 1 TABLET, ORALLY, DAILY, TREATMENT STARTED MORE THAN 2 YEARS AGO.
     Route: 048
  9. METOPROLOL [Concomitant]
     Active Substance: METOPROLOL
     Indication: Hypertension
     Dosage: 1 TABLET, ORALLY, DAILY, TREATMENT STARTED MORE THAN 2 YEARS AGO
     Route: 048
  10. FERROUS BISGLYCINATE [Concomitant]
     Active Substance: FERROUS BISGLYCINATE
     Indication: Iron deficiency
     Dosage: 1 TABLET , ORALLY, DAILY, TREATMENT STARTED MORE THAN 2 YEARS AGO,
     Route: 048
  11. GABAPENTIN [Concomitant]
     Active Substance: GABAPENTIN
     Indication: Neuropathy peripheral
     Dosage: GABAPENTIN 300MG/DAY ( 1 TABLET, ORALLY, 3 TIMES A DAY, TREATMENT STARTED MORE THAN 2 YEARS AGO)
     Route: 048
  12. GEMCITABINE [Concomitant]
     Active Substance: GEMCITABINE
     Indication: Product used for unknown indication
     Route: 065
     Dates: start: 2019
  13. GEMCITABINE [Concomitant]
     Active Substance: GEMCITABINE
     Dosage: DOSAGE 1970MG-25%=1477MG, INTRAVENOUS
     Route: 042

REACTIONS (6)
  - Spinal disorder [Unknown]
  - Neutropenia [Not Recovered/Not Resolved]
  - Anaemia [Unknown]
  - Product availability issue [Unknown]
  - Skin toxicity [Recovered/Resolved]
  - Alopecia [Recovered/Resolved]

NARRATIVE: CASE EVENT DATE: 20210101
